FAERS Safety Report 5507746-2 (Version None)
Quarter: 2007Q4

REPORT INFORMATION
  Report Type: 
  Country: None (occurrence: None)
  Receive Date: 20071102
  Receipt Date: 20071022
  Transmission Date: 20080405
  Serious: Yes (Hospitalization, Other)
  Sender: FDA-Public Use
  Company Number: E2090-00331-SPO-AT

PATIENT
  Age: 20 Year
  Sex: Male
  Weight: 65 kg

DRUGS (5)
  1. ZONEGRAN [Suspect]
     Indication: PARTIAL SEIZURES
     Dosage: 300 MG, ORAL
     Route: 048
     Dates: start: 20070701, end: 20071001
  2. LEVETIRAZEPAM (LEVETIRACETAM) [Suspect]
     Dosage: 3000 MG, ORAL
     Route: 048
     Dates: start: 20010101
  3. VALPROATE SODIUM [Suspect]
     Dosage: 3500 MG, ORAL
     Route: 048
     Dates: start: 20010101
  4. QUETIAPIN (QUETIAPINE) [Concomitant]
  5. SERTRALINE [Concomitant]

REACTIONS (2)
  - DRUG INTERACTION [None]
  - THROMBOCYTOPENIA [None]
